FAERS Safety Report 18602848 (Version 1)
Quarter: 2020Q4

REPORT INFORMATION
  Report Type: Spontaneous
  Country: BR (occurrence: BR)
  Receive Date: 20201210
  Receipt Date: 20201210
  Transmission Date: 20210114
  Serious: Yes (Other)
  Sender: FDA-Public Use
  Company Number: BR-TAKEDA-2020TUS054063

PATIENT
  Sex: Male

DRUGS (3)
  1. RITALINA [Suspect]
     Active Substance: METHYLPHENIDATE HYDROCHLORIDE
     Indication: PRODUCT USED FOR UNKNOWN INDICATION
     Route: 065
  2. CREATINE [Concomitant]
     Active Substance: CREATINE
     Indication: MUSCLE DISORDER
     Dosage: UNK
  3. VENVANSE [Suspect]
     Active Substance: LISDEXAMFETAMINE DIMESYLATE
     Indication: ATTENTION DEFICIT HYPERACTIVITY DISORDER
     Dosage: 70 MILLIGRAM, QD
     Route: 065
     Dates: start: 20150101

REACTIONS (11)
  - Narcolepsy [Unknown]
  - Nervousness [Unknown]
  - Tremor [Unknown]
  - Incorrect dosage administered [Unknown]
  - Wrong technique in product usage process [Unknown]
  - Impaired work ability [Unknown]
  - Somnolence [Unknown]
  - Inability to afford medication [Unknown]
  - Drug ineffective [Unknown]
  - Impaired quality of life [Unknown]
  - Unevaluable event [Unknown]
